FAERS Safety Report 16727881 (Version 1)
Quarter: 2019Q3

REPORT INFORMATION
  Report Type: Spontaneous
  Country: US (occurrence: US)
  Receive Date: 20190822
  Receipt Date: 20190822
  Transmission Date: 20191005
  Serious: Yes (Other)
  Sender: FDA-Public Use
  Company Number: US-009507513-1908USA005849

PATIENT
  Age: 44 Year
  Sex: Female

DRUGS (2)
  1. INTRON A [Suspect]
     Active Substance: INTERFERON ALFA-2B
     Dosage: 3 TIMES PER WEEK FOR THE REMAINDER OF THE YEAR
     Route: 058
  2. INTRON A [Suspect]
     Active Substance: INTERFERON ALFA-2B
     Indication: METASTATIC MALIGNANT MELANOMA
     Dosage: DAILY, 5 DAYS PER WEEK FOR 20 TREATMENTS
     Route: 042

REACTIONS (2)
  - Photophobia [Recovered/Resolved]
  - Retinopathy [Recovered/Resolved]
